FAERS Safety Report 6153281-0 (Version None)
Quarter: 2009Q2

REPORT INFORMATION
  Report Type: 
  Country: None (occurrence: None)
  Receive Date: 20090409
  Receipt Date: 20090327
  Transmission Date: 20091009
  Serious: Yes (Death, Hospitalization)
  Sender: FDA-Public Use
  Company Number: 2009000931

PATIENT
  Age: 72 Year
  Sex: Female
  Weight: 61 kg

DRUGS (5)
  1. ERLOTINIB(TABLET) [Suspect]
     Indication: LUNG ADENOCARCINOMA
     Dosage: (150 MG,QD),ORAL
     Route: 048
     Dates: start: 20080723, end: 20080820
  2. IRON(IRON) [Concomitant]
  3. EVAMYL (LORMETAZEPAM) [Concomitant]
  4. NITRAZEPAM [Concomitant]
  5. AMOBAN (ZOPICLONE) [Concomitant]

REACTIONS (3)
  - HAEMOGLOBIN DECREASED [None]
  - LUNG ADENOCARCINOMA [None]
  - MALIGNANT NEOPLASM PROGRESSION [None]
